FAERS Safety Report 16701178 (Version 1)
Quarter: 2019Q3

REPORT INFORMATION
  Report Type: Spontaneous
  Country: TH (occurrence: TH)
  Receive Date: 20190814
  Receipt Date: 20190814
  Transmission Date: 20191004
  Serious: Yes (Other)
  Sender: FDA-Public Use
  Company Number: TH-ROCHE-2371345

PATIENT
  Age: 55 Year
  Sex: Male

DRUGS (6)
  1. BEVACIZUMAB. [Suspect]
     Active Substance: BEVACIZUMAB
     Indication: NON-SMALL CELL LUNG CANCER STAGE IV
     Dosage: 1ST LINE TREATMENT USED IN COMBINATION WITH ATEZOLIZUMAB, CARBOPLATIN AND PACLITAXEL EVERY 3 WEEKS F
     Route: 065
  2. ATEZOLIZUMAB. [Suspect]
     Active Substance: ATEZOLIZUMAB
     Indication: NON-SMALL CELL LUNG CANCER STAGE IV
     Dosage: 1ST LINE TREATMENT USED IN COMBINATION WITH BEVACIZUMAB, CARBOPLATIN AND PACLITAXEL EVERY 3 WEEKS FO
     Route: 065
  3. CARBOPLATIN. [Suspect]
     Active Substance: CARBOPLATIN
     Indication: NON-SMALL CELL LUNG CANCER STAGE IV
     Dosage: 1ST LINE TREATMENT USED IN COMBINATION WITH ATEZOLIZUMAB, BEVACIZUMAB AND PACLITAXEL EVERY 3 WEEKS F
     Route: 065
  4. PACLITAXEL. [Suspect]
     Active Substance: PACLITAXEL
     Indication: NON-SMALL CELL LUNG CANCER STAGE IV
     Dosage: 1ST LINE TREATMENT USED IN COMBINATION WITH ATEZOLIZUMAB, BEVACIZUMAB AND CARBOPLATIN EVERY 3 WEEKS
     Route: 065
  5. ATEZOLIZUMAB. [Suspect]
     Active Substance: ATEZOLIZUMAB
     Dosage: MAINTENANCE TREATMENT AFTER INITIAL 6 CYCLES (USED WITH BEVACIZUMAB)
     Route: 065
  6. BEVACIZUMAB. [Suspect]
     Active Substance: BEVACIZUMAB
     Dosage: MAINTENANCE TREATMENT AFTER INITIAL 6 CYCLES (USED WITH ATEZOLIZUMAB)
     Route: 065

REACTIONS (2)
  - Blood thyroid stimulating hormone increased [Unknown]
  - Rash [Recovered/Resolved]
